FAERS Safety Report 6268446-7 (Version None)
Quarter: 2009Q3

REPORT INFORMATION
  Report Type: 
  Country: None (occurrence: None)
  Receive Date: 20090709
  Receipt Date: 20090709
  Transmission Date: 20100115
  Serious: Yes (Other)
  Sender: FDA-Public Use
  Company Number: None

PATIENT
  Sex: Male
  Weight: 61.4 kg

DRUGS (1)
  1. PROLEUKIN [Suspect]
     Indication: RENAL CANCER METASTATIC
     Dosage: 37.0 MIU Q 8 HRS IV BOLUS
     Route: 040
     Dates: start: 20090629, end: 20090703

REACTIONS (5)
  - DISEASE RECURRENCE [None]
  - HYPOTENSION [None]
  - HYPOXIA [None]
  - PLEURAL EFFUSION [None]
  - RENAL FAILURE ACUTE [None]
